FAERS Safety Report 18276865 (Version 1)
Quarter: 2020Q3

REPORT INFORMATION
  Report Type: Other
  Country: US (occurrence: US)
  Receive Date: 20200917
  Receipt Date: 20200917
  Transmission Date: 20201103
  Serious: Yes (Death)
  Sender: FDA-Public Use
  Company Number: US-ROCHE-2672450

PATIENT
  Age: 45 Year
  Sex: Male

DRUGS (13)
  1. OCREVUS [Suspect]
     Active Substance: OCRELIZUMAB
     Indication: PRIMARY PROGRESSIVE MULTIPLE SCLEROSIS
     Dosage: DATES OF PREVIOUS INFUSION? 28/JAN/2020
     Route: 042
     Dates: start: 20200114
  2. BENADRYL [Concomitant]
     Active Substance: DIPHENHYDRAMINE HYDROCHLORIDE
     Dosage: 50MG/ML
     Route: 042
  3. TRI MIX INJECTION [Concomitant]
     Dosage: AS NEEDED
  4. UNISOM SLEEPGELS NIGHTTIME SLEEP?AID [Concomitant]
     Active Substance: DIPHENHYDRAMINE HYDROCHLORIDE
     Dosage: TAKE 2 CAPS BY MOUTH NIGHTLY
     Route: 048
  5. FLORINEF ACETATE [Concomitant]
     Active Substance: FLUDROCORTISONE ACETATE
     Dosage: TAKE ONE AND ONE?HALF TABLETS BY MOUTH TWICE A DAY
     Route: 048
  6. ATIVAN [Concomitant]
     Active Substance: LORAZEPAM
     Dosage: TAKE 1.5?2 TABS PO Q HS PRN
     Route: 048
  7. SOLU?MEDROL [Concomitant]
     Active Substance: METHYLPREDNISOLONE SODIUM SUCCINATE
     Route: 042
  8. ADDERALL [Concomitant]
     Active Substance: AMPHETAMINE ASPARTATE\AMPHETAMINE SULFATE\DEXTROAMPHETAMINE SACCHARATE\DEXTROAMPHETAMINE SULFATE
     Route: 048
  9. IBUPROFEN. [Concomitant]
     Active Substance: IBUPROFEN
     Dosage: TAKE 200 BY MOUTH AS NEEDED
     Route: 048
  10. WAL?ACT [Concomitant]
     Active Substance: PSEUDOEPHEDRINE HYDROCHLORIDE\TRIPROLIDINE HYDROCHLORIDE
     Dosage: 2.5?60 MG, TAKE 1 TAB BY MOUTH AS NEEDED
     Route: 048
  11. VITAMIN D3 [Concomitant]
     Active Substance: CHOLECALCIFEROL
     Dosage: TAKE 5000 UNITS BY MOUTH EVERY MORNING
     Route: 048
  12. THERMOTABS [Concomitant]
     Dosage: TAKE 1 TAB BY MOUTH 2 TIMES DAILY
     Route: 048
  13. CALCIUM [Concomitant]
     Active Substance: CALCIUM
     Dosage: TAKE 2 TABS BY MOUTH DAILY
     Route: 048

REACTIONS (1)
  - Death [Fatal]

NARRATIVE: CASE EVENT DATE: 20200801
